FAERS Safety Report 4743867-X (Version None)
Quarter: 2005Q3

REPORT INFORMATION
  Report Type: 
  Country: None (occurrence: None)
  Receive Date: 20050809
  Receipt Date: 20050728
  Transmission Date: 20060218
  Serious: Yes (Other)
  Sender: FDA-Public Use
  Company Number: HQWYE653901AUG05

PATIENT
  Age: 28 Year
  Sex: Female

DRUGS (3)
  1. TRIQUILAR (LEVONORGESTREL/ETHINYL ESTRADIOL, TABLET) [Suspect]
     Indication: ORAL CONTRACEPTION
     Dosage: 1 TABLET 1X PER 1 DAY
     Route: 048
     Dates: start: 20050710, end: 20050720
  2. ENALAPRIL MALEATE [Concomitant]
  3. FUROSEMIDE [Concomitant]

REACTIONS (1)
  - HAEMATOCHEZIA [None]
